FAERS Safety Report 10667746 (Version 1)
Quarter: 2014Q4

REPORT INFORMATION
  Report Type: Spontaneous
  Country: US (occurrence: None)
  Receive Date: 20141208
  Receipt Date: 20141208
  Transmission Date: 20150529
  Serious: No
  Sender: FDA-Public Use
  Company Number: 2014TUS006534

PATIENT
  Sex: Female

DRUGS (2)
  1. PRISTIX (DESVENLAFAXINE SUCCINATE) [Concomitant]
  2. BRINTELLIX [Suspect]
     Active Substance: VORTIOXETINE HYDROBROMIDE
     Indication: PRODUCT USED FOR UNKNOWN INDICATION
     Dosage: 10 MG, QD , EVERY MORNING, ORAL
     Route: 048
     Dates: start: 20140705

REACTIONS (1)
  - Withdrawal syndrome [None]
